FAERS Safety Report 15527041 (Version 3)
Quarter: 2024Q2

REPORT INFORMATION
  Report Type: Spontaneous
  Country: FR (occurrence: FR)
  Receive Date: 20181018
  Receipt Date: 20240418
  Transmission Date: 20240716
  Serious: Yes (Other)
  Sender: FDA-Public Use
  Company Number: PHHY2018FR123387

PATIENT
  Age: 27 Year
  Sex: Male

DRUGS (22)
  1. MYCOPHENOLATE MOFETIL [Suspect]
     Active Substance: MYCOPHENOLATE MOFETIL
     Indication: Plastic surgery to the face
     Dosage: 2 G, QD
     Route: 065
  2. MYCOPHENOLATE MOFETIL [Suspect]
     Active Substance: MYCOPHENOLATE MOFETIL
     Indication: Immunosuppressant drug therapy
     Dosage: 500 MG, QD
     Route: 065
  3. MYCOPHENOLATE MOFETIL [Suspect]
     Active Substance: MYCOPHENOLATE MOFETIL
     Dosage: 1000 MG, QD
     Route: 065
  4. TACROLIMUS [Suspect]
     Active Substance: TACROLIMUS
     Indication: Plastic surgery to the face
     Dosage: UNK
     Route: 065
  5. TACROLIMUS [Suspect]
     Active Substance: TACROLIMUS
     Indication: Immunosuppressant drug therapy
     Dosage: TARGETED TROUGH LEVEL 10-15 NG/ML
     Route: 065
  6. TACROLIMUS [Suspect]
     Active Substance: TACROLIMUS
     Indication: Prophylaxis against transplant rejection
     Dosage: UNK
     Route: 065
  7. TACROLIMUS [Suspect]
     Active Substance: TACROLIMUS
     Indication: Immunosuppression
     Dosage: BETWEEN 5 AND 10 NG/ML
     Route: 065
  8. VINCRISTINE [Suspect]
     Active Substance: VINCRISTINE
     Indication: B-cell lymphoma
     Dosage: EIGHT ROUNDS OF R-CHOP
     Route: 065
     Dates: end: 20110816
  9. VINCRISTINE [Suspect]
     Active Substance: VINCRISTINE
     Dosage: 4.2 MG/M2, QW (EIGHT ROUNDS OF R-CHOP)
     Route: 065
     Dates: start: 20110225, end: 20110816
  10. CYCLOPHOSPHAMIDE [Suspect]
     Active Substance: CYCLOPHOSPHAMIDE
     Indication: B-cell lymphoma
     Dosage: EIGHT ROUNDS OF R-CHOP
     Route: 065
     Dates: end: 20110816
  11. CYCLOPHOSPHAMIDE [Suspect]
     Active Substance: CYCLOPHOSPHAMIDE
     Dosage: 2250 MG/M2, QW (EIGHT ROUNDS OF R-CHOP)
     Route: 065
     Dates: start: 20110225, end: 20110816
  12. RITUXIMAB [Suspect]
     Active Substance: RITUXIMAB
     Indication: B-cell lymphoma
     Dosage: EIGHT ROUNDS OF R-CHOP
     Route: 065
     Dates: end: 20110816
  13. RITUXIMAB [Suspect]
     Active Substance: RITUXIMAB
     Dosage: 1125 MG/M2, QW (EIGHT ROUNDS OF R-CHOP)
     Route: 065
     Dates: start: 20110225, end: 20110816
  14. PREDNISOLONE [Suspect]
     Active Substance: PREDNISOLONE
     Indication: Immunosuppression
     Dosage: UNK
     Route: 065
     Dates: start: 201201
  15. PREDNISOLONE [Suspect]
     Active Substance: PREDNISOLONE
     Indication: B-cell lymphoma
     Dosage: EIGHT ROUNDS OF R-CHOP
     Route: 065
     Dates: start: 20110225, end: 20110816
  16. PREDNISOLONE [Suspect]
     Active Substance: PREDNISOLONE
     Indication: Prophylaxis against transplant rejection
     Dosage: 250 MG ON DAY 1; 1MG/KG/D FOR 10 DAYS AND THEN TAPERED TO 10 MG PER DAY
     Route: 065
  17. MYCOPHENOLIC ACID [Suspect]
     Active Substance: MYCOPHENOLIC ACID
     Indication: Prophylaxis against transplant rejection
     Dosage: ALSO RECEIVED MMF 500 MG AND THEN 1000 MG/DAY
     Route: 065
  18. CAMPATH [Suspect]
     Active Substance: ALEMTUZUMAB
     Indication: Transplant rejection
     Dosage: UNK
     Route: 065
  19. PREDNISONE [Suspect]
     Active Substance: PREDNISONE
     Indication: B-cell lymphoma
     Dosage: PREDNISONE 40 MG/M2 FOR 5 DAYS  EIGHT ROUNDS OF R-CHOP
     Route: 065
     Dates: start: 20110225, end: 20110816
  20. THYMOGLOBULIN [Suspect]
     Active Substance: LAPINE T-LYMPHOCYTE IMMUNE GLOBULIN
     Indication: Prophylaxis against transplant rejection
     Dosage: 1.25 MG/KG/DAYS FOR 10 DAYS
     Route: 065
  21. THYMOGLOBULIN [Suspect]
     Active Substance: LAPINE T-LYMPHOCYTE IMMUNE GLOBULIN
     Indication: Immunosuppression
  22. SULFAMETHOXAZOLE AND TRIMETHOPRIM [Concomitant]
     Active Substance: SULFAMETHOXAZOLE\TRIMETHOPRIM
     Indication: Prophylaxis
     Dosage: UNK
     Route: 065

REACTIONS (11)
  - B-cell lymphoma [Recovered/Resolved]
  - Epstein-Barr virus associated lymphoma [Unknown]
  - Candida infection [Unknown]
  - Staphylococcal infection [Unknown]
  - Epstein-Barr virus infection [Unknown]
  - Hepatitis infectious mononucleosis [Unknown]
  - Mouth ulceration [Unknown]
  - Smooth muscle cell neoplasm [Not Recovered/Not Resolved]
  - Herpes simplex [Unknown]
  - Off label use [Unknown]
  - Product use in unapproved indication [Unknown]
